FAERS Safety Report 16183844 (Version 4)
Quarter: 2019Q4

REPORT INFORMATION
  Report Type: Report from Study
  Country: FR (occurrence: FR)
  Receive Date: 20190411
  Receipt Date: 20191125
  Transmission Date: 20200122
  Serious: Yes (Hospitalization, Other)
  Sender: FDA-Public Use
  Company Number: FR-ROCHE-2294499

PATIENT
  Age: 60 Year
  Sex: Female
  Weight: 62 kg

DRUGS (7)
  1. ABASAGLAR [Concomitant]
     Active Substance: INSULIN GLARGINE
     Route: 058
     Dates: start: 201904, end: 20190417
  2. TRESIBA [Concomitant]
     Active Substance: INSULIN DEGLUDEC
     Dosage: 6 UNIT
     Route: 058
     Dates: start: 201904
  3. DOXYCYCLINE. [Concomitant]
     Active Substance: DOXYCYCLINE
     Route: 048
     Dates: start: 20190118, end: 20190524
  4. NOVORAPID [Concomitant]
     Active Substance: INSULIN ASPART
     Dosage: 20 UNIT
     Route: 058
     Dates: start: 201904
  5. COBIMETINIB. [Suspect]
     Active Substance: COBIMETINIB
     Indication: MALIGNANT MELANOMA
     Dosage: ON A 21 DAYS ON, 7 DAYS OFF SCHEDULE.?DATE OF MOST RECENT DOSE OF COBIMETINIB (60 MG) PRIOR TO AE ON
     Route: 048
     Dates: start: 20180622
  6. ATEZOLIZUMAB. [Suspect]
     Active Substance: ATEZOLIZUMAB
     Indication: MALIGNANT MELANOMA
     Dosage: DATE OF MOST RECENT DOSE OF ATEZOLIZUMAB (840 MG) PRIOR TO AE (HYPERGLYCEMIA) ONSET WAS ON 15/MAR/20
     Route: 042
     Dates: start: 20180622
  7. ZYMAD [Concomitant]
     Active Substance: CHOLECALCIFEROL
     Route: 048
     Dates: start: 201904

REACTIONS (5)
  - Hypothyroidism [Not Recovered/Not Resolved]
  - Thyroid disorder [Recovered/Resolved]
  - Hyperglycaemia [Recovered/Resolved]
  - Adrenal insufficiency [Not Recovered/Not Resolved]
  - Diabetes mellitus [Not Recovered/Not Resolved]

NARRATIVE: CASE EVENT DATE: 20190301
